FAERS Safety Report 11900353 (Version 1)
Quarter: 2016Q1

REPORT INFORMATION
  Report Type: Report from Study
  Country: US (occurrence: US)
  Receive Date: 20160108
  Receipt Date: 20160108
  Transmission Date: 20160526
  Serious: No
  Sender: FDA-Public Use
  Company Number: US-ABBVIE-15P-163-1448695-00

PATIENT
  Age: 63 Year
  Sex: Male

DRUGS (2)
  1. RIBAVIRIN. [Suspect]
     Active Substance: RIBAVIRIN
     Indication: CHRONIC HEPATITIS C
     Route: 048
     Dates: start: 20150127, end: 20150714
  2. VIEKIRA PAK [Suspect]
     Active Substance: DASABUVIR\OMBITASVIR\PARITAPREVIR\RITONAVIR
     Indication: CHRONIC HEPATITIS C
     Route: 048
     Dates: start: 20150127, end: 20150714

REACTIONS (8)
  - Fatigue [Unknown]
  - Insomnia [Unknown]
  - Rhinitis allergic [Unknown]
  - Pain in extremity [Unknown]
  - Dry skin [Unknown]
  - Nausea [Unknown]
  - Depressed mood [Unknown]
  - Pruritus [Unknown]

NARRATIVE: CASE EVENT DATE: 20150128
